FAERS Safety Report 10703886 (Version 5)
Quarter: 2015Q1

REPORT INFORMATION
  Report Type: Spontaneous
  Country: JP (occurrence: JP)
  Receive Date: 20150112
  Receipt Date: 20150306
  Transmission Date: 20150721
  Serious: Yes (Other)
  Sender: FDA-Public Use
  Company Number: JP-PFIZER INC-2015006780

PATIENT
  Age: 65 Year
  Sex: Male

DRUGS (12)
  1. CELECOX [Suspect]
     Active Substance: CELECOXIB
     Indication: LUMBAR SPINAL STENOSIS
     Dosage: 400 MG, DAILY
     Route: 048
     Dates: start: 20141212, end: 20141231
  2. WINTERMIN [Suspect]
     Active Substance: PROMAZINE
     Indication: BIPOLAR I DISORDER
  3. URSODEOXYCHOLIC ACID [Concomitant]
     Active Substance: URSODIOL
     Dosage: 200 MG, 3X/DAY
     Route: 048
  4. LIMAS [Suspect]
     Active Substance: LITHIUM CARBONATE
     Indication: BIPOLAR I DISORDER
     Dosage: UNK
  5. ONGLYZA [Concomitant]
     Active Substance: SAXAGLIPTIN HYDROCHLORIDE
     Dosage: 5 MG, 1X/DAY AT BREAKFAST
     Route: 048
  6. LUNESTA [Concomitant]
     Active Substance: ESZOPICLONE
     Dosage: 2 MG, 1X/DAY AS NEEDED
  7. LYRICA [Suspect]
     Active Substance: PREGABALIN
     Indication: LUMBAR SPINAL STENOSIS
     Dosage: 150 MG, DAILY
     Route: 048
     Dates: start: 20141212, end: 20141231
  8. CONTOMIN [Concomitant]
     Active Substance: CHLORPROMAZINE
     Dosage: 25 MG, 1X/DAY BEFORE SLEEP
  9. EBRANTIL [Concomitant]
     Active Substance: URAPIDIL
     Dosage: 15 MG, 2X/DAY BREAKFAST AND DINNER
  10. TAKEPRON [Concomitant]
     Active Substance: LANSOPRAZOLE
     Dosage: 15 MG, 1X/DAY
     Route: 048
  11. METACT [Concomitant]
     Active Substance: METFORMIN HYDROCHLORIDE\PIOGLITAZONE HYDROCHLORIDE
     Dosage: UNKNOWN DOSE AFTER BREAKFAST
  12. MICARDIS [Concomitant]
     Active Substance: TELMISARTAN
     Dosage: 40 MG, 1X/DAY AFTER BREAKFAST

REACTIONS (3)
  - Altered state of consciousness [Recovered/Resolved]
  - Parkinsonism [Recovered/Resolved]
  - Blood creatine phosphokinase increased [Recovered/Resolved]

NARRATIVE: CASE EVENT DATE: 20141231
